FAERS Safety Report 21302071 (Version 1)
Quarter: 2022Q3

REPORT INFORMATION
  Report Type: Report from Study
  Country: GB (occurrence: None)
  Receive Date: 20220907
  Receipt Date: 20220907
  Transmission Date: 20221027
  Serious: Yes (Other)
  Sender: FDA-Public Use
  Company Number: 2022A303964

PATIENT

DRUGS (1)
  1. CALQUENCE [Suspect]
     Active Substance: ACALABRUTINIB
     Route: 048

REACTIONS (14)
  - Cardiotoxicity [Unknown]
  - Pulmonary toxicity [Unknown]
  - Arthritis [Unknown]
  - Gastrointestinal toxicity [Unknown]
  - Atrial fibrillation [Unknown]
  - Diarrhoea [Unknown]
  - Cytopenia [Unknown]
  - Headache [Unknown]
  - Haemorrhage [Unknown]
  - Myalgia [Unknown]
  - Arthralgia [Unknown]
  - Fatigue [Unknown]
  - Anaemia [Unknown]
  - Rash [Unknown]
